FAERS Safety Report 5908792-7 (Version None)
Quarter: 2008Q3

REPORT INFORMATION
  Report Type: 
  Country: None (occurrence: None)
  Receive Date: 20080929
  Receipt Date: 20080916
  Transmission Date: 20090109
  Serious: Yes (Hospitalization, Other)
  Sender: FDA-Public Use
  Company Number: 238825J08USA

PATIENT
  Age: 56 Year
  Sex: Female
  Weight: 107 kg

DRUGS (8)
  1. REBIF [Suspect]
     Indication: MULTIPLE SCLEROSIS
     Dosage: SEE IMAGE
     Route: 058
     Dates: start: 20041211, end: 20080816
  2. REBIF [Suspect]
     Indication: MULTIPLE SCLEROSIS
     Dosage: SEE IMAGE
     Route: 058
     Dates: start: 20080909, end: 20080916
  3. REBIF [Suspect]
     Indication: MULTIPLE SCLEROSIS
     Dosage: SEE IMAGE
     Route: 058
     Dates: start: 20080916
  4. BACLOFEN [Concomitant]
  5. ATENOLOL [Concomitant]
  6. PROZAC [Concomitant]
  7. MORPHINE (MORPHINE /0036301/) [Concomitant]
  8. BUSPIRONE HCL [Concomitant]

REACTIONS (8)
  - BACK PAIN [None]
  - BALANCE DISORDER [None]
  - CSF PRESSURE INCREASED [None]
  - DYSARTHRIA [None]
  - FEELING DRUNK [None]
  - HEADACHE [None]
  - OPTIC NEURITIS [None]
  - RENAL CANCER [None]
